FAERS Safety Report 6027089-0 (Version None)
Quarter: 2009Q1

REPORT INFORMATION
  Report Type: 
  Country: None (occurrence: None)
  Receive Date: 20090105
  Receipt Date: 20081226
  Transmission Date: 20090719
  Serious: Yes (Death, Hospitalization)
  Sender: FDA-Public Use
  Company Number: IN-ELI_LILLY_AND_COMPANY-IN200812005825

PATIENT
  Sex: Male

DRUGS (1)
  1. XIGRIS [Suspect]
     Indication: PNEUMONIA
     Dosage: UNK, UNK
     Route: 042
     Dates: start: 20081219, end: 20081201

REACTIONS (3)
  - DEATH [None]
  - HAEMORRHAGE [None]
  - MOUTH HAEMORRHAGE [None]
